FAERS Safety Report 5065101-6 (Version None)
Quarter: 2006Q3

REPORT INFORMATION
  Report Type: 
  Country: None (occurrence: None)
  Receive Date: 20060727
  Receipt Date: 20060727
  Transmission Date: 20061208
  Serious: Yes (Hospitalization)
  Sender: FDA-Public Use
  Company Number: None

PATIENT
  Sex: Male
  Weight: 70.7611 kg

DRUGS (1)
  1. GABAPENTIN [Suspect]
     Indication: NEUROPATHY
     Dosage: 400 MG   DAILY   BUCCAL
     Route: 002
     Dates: start: 20000301, end: 20000303

REACTIONS (1)
  - MENTAL STATUS CHANGES [None]
